FAERS Safety Report 15200404 (Version 1)
Quarter: 2018Q3

REPORT INFORMATION
  Report Type: Spontaneous
  Country: FR (occurrence: FR)
  Receive Date: 20180726
  Receipt Date: 20180726
  Transmission Date: 20181010
  Serious: Yes (Hospitalization)
  Sender: FDA-Public Use
  Company Number: FR-CONCORDIA PHARMACEUTICALS INC.-E2B_00014666

PATIENT
  Age: 73 Year
  Sex: Male
  Weight: 87.5 kg

DRUGS (13)
  1. METFORMINE [Concomitant]
     Active Substance: METFORMIN HYDROCHLORIDE
  2. VALIUM [Concomitant]
     Active Substance: DIAZEPAM
     Route: 048
     Dates: start: 20160325
  3. FUROSEMIDE. [Concomitant]
     Active Substance: FUROSEMIDE
  4. SOLUPRED [Concomitant]
     Dates: start: 20160325
  5. KARDEGIC [Concomitant]
     Active Substance: ASPIRIN DL-LYSINE
  6. DIGOXIN. [Suspect]
     Active Substance: DIGOXIN
     Indication: ATRIAL FIBRILLATION
     Route: 048
     Dates: start: 20160324, end: 20160330
  7. PREVISCAN 20 MG, COMPRIM? S?CABLE [Concomitant]
     Active Substance: FLUINDIONE
  8. SPIRIVA [Concomitant]
     Active Substance: TIOTROPIUM BROMIDE MONOHYDRATE
  9. ISOPTINE [Concomitant]
     Active Substance: VERAPAMIL HYDROCHLORIDE
  10. CRESTOR 20 MG, COMPRIM? PELLICUL? [Concomitant]
  11. MIFLONIL 400 MICROGRAMMES, POUDRE POUR INHALATION EN G?LULE [Concomitant]
  12. METHYLPREDNISOLONE. [Concomitant]
     Active Substance: METHYLPREDNISOLONE
     Dates: start: 20160325
  13. FORADIL [Concomitant]
     Active Substance: FORMOTEROL FUMARATE

REACTIONS (3)
  - Disorientation [Not Recovered/Not Resolved]
  - Cardioactive drug level increased [Recovered/Resolved]
  - Confusional state [Not Recovered/Not Resolved]

NARRATIVE: CASE EVENT DATE: 20160329
